FAERS Safety Report 20949768 (Version 2)
Quarter: 2022Q2

REPORT INFORMATION
  Report Type: Other
  Country: ES (occurrence: ES)
  Receive Date: 20220613
  Receipt Date: 20220617
  Transmission Date: 20220721
  Serious: Yes (Other)
  Sender: FDA-Public Use
  Company Number: None

PATIENT
  Age: 74 Year
  Sex: Female

DRUGS (1)
  1. MIRABEGRON [Suspect]
     Active Substance: MIRABEGRON
     Indication: Urinary incontinence
     Dosage: 1 TABLET, ONCE DAILY (EVERY 24 HOURS)
     Route: 048
     Dates: start: 20220330

REACTIONS (4)
  - Foreign body sensation in eyes [Recovered/Resolved]
  - Eye inflammation [Recovered/Resolved]
  - Headache [Recovered/Resolved]
  - Neck pain [Recovered/Resolved]
